FAERS Safety Report 4659920-5 (Version None)
Quarter: 2005Q2

REPORT INFORMATION
  Report Type: 
  Country: None (occurrence: None)
  Receive Date: 20050419
  Receipt Date: 20041123
  Transmission Date: 20051028
  Serious: Yes (Other)
  Sender: FDA-Public Use
  Company Number: 15495

PATIENT
  Age: 67 Year
  Sex: Female

DRUGS (4)
  1. ADRIAMYCIN PFS [Suspect]
     Indication: BREAST CANCER METASTATIC
     Dosage: EVERY 2 WKS
     Dates: start: 20041026
  2. ADRIAMYCIN PFS [Suspect]
     Indication: BREAST CANCER METASTATIC
     Dosage: EVERY 2 WKS
     Dates: start: 20041109
  3. ADRIAMYCIN PFS [Suspect]
     Indication: BREAST CANCER METASTATIC
     Dosage: EVERY 2 WKS
     Dates: start: 20041123
  4. ZINECARD [Concomitant]

REACTIONS (3)
  - DEAFNESS NEUROSENSORY [None]
  - OTOACOUSTIC EMISSIONS TEST ABNORMAL [None]
  - TINNITUS [None]
